FAERS Safety Report 20305637 (Version 1)
Quarter: 2022Q1

REPORT INFORMATION
  Report Type: Spontaneous
  Country: US (occurrence: US)
  Receive Date: 20220106
  Receipt Date: 20220106
  Transmission Date: 20220423
  Serious: Yes (Hospitalization, Other)
  Sender: FDA-Public Use
  Company Number: US-AMGEN-USASP2021206409

PATIENT
  Age: 87 Year
  Sex: Male

DRUGS (10)
  1. ROMIPLOSTIM [Suspect]
     Active Substance: ROMIPLOSTIM
     Indication: Immune thrombocytopenia
     Dosage: UNK
     Route: 065
  2. HYDRALAZINE [Concomitant]
     Active Substance: HYDRALAZINE HYDROCHLORIDE
  3. ISOSORBIDE MONONITRATE [Concomitant]
     Active Substance: ISOSORBIDE MONONITRATE
  4. FUROSEMIDE [Concomitant]
     Active Substance: FUROSEMIDE
  5. PREDNISONE [Concomitant]
     Active Substance: PREDNISONE
  6. GLIPIZIDE [Concomitant]
     Active Substance: GLIPIZIDE
  7. APIXABAN [Concomitant]
     Active Substance: APIXABAN
  8. CARVEDILOL [Concomitant]
     Active Substance: CARVEDILOL
  9. ATORVASTATIN [Concomitant]
     Active Substance: ATORVASTATIN
  10. HUMAN IMMUNOGLOBULIN G [Concomitant]
     Active Substance: HUMAN IMMUNOGLOBULIN G
     Route: 042

REACTIONS (11)
  - Coronary artery stenosis [Unknown]
  - Congenital coronary artery malformation [Unknown]
  - Gingival bleeding [Unknown]
  - Gastrointestinal haemorrhage [Recovered/Resolved]
  - Conjunctival pallor [Unknown]
  - Diverticulum [Unknown]
  - Myocardial infarction [Unknown]
  - Rectal haemorrhage [Unknown]
  - Platelet count decreased [Recovered/Resolved]
  - Anaemia [Recovered/Resolved]
  - Dizziness [Unknown]
